FAERS Safety Report 9365670 (Version 1)
Quarter: 2013Q2

REPORT INFORMATION
  Report Type: Spontaneous
  Country: US (occurrence: None)
  Receive Date: 20130624
  Receipt Date: 20130624
  Transmission Date: 20140414
  Serious: Yes (Hospitalization)
  Sender: FDA-Public Use
  Company Number: None

PATIENT
  Age: 65 Year
  Sex: Male
  Weight: 95 kg

DRUGS (1)
  1. DICYCLOMINE [Suspect]
     Dosage: PRN
     Route: 048

REACTIONS (5)
  - Vision blurred [None]
  - Hyperhidrosis [None]
  - Dizziness [None]
  - Anxiety [None]
  - Therapeutic response decreased [None]
